FAERS Safety Report 22653977 (Version 8)
Quarter: 2023Q4

REPORT INFORMATION
  Report Type: Report from Study
  Country: US (occurrence: US)
  Receive Date: 20230629
  Receipt Date: 20231215
  Transmission Date: 20240110
  Serious: Yes (Hospitalization, Other)
  Sender: FDA-Public Use
  Company Number: US-TAKEDA-2023TUS033328

PATIENT
  Age: 82 Year
  Sex: Male

DRUGS (13)
  1. MOBOCERTINIB [Suspect]
     Active Substance: MOBOCERTINIB
     Indication: Bronchial carcinoma
     Dosage: 160 MILLIGRAM, QD
     Route: 048
     Dates: start: 20230321, end: 20230626
  2. MOBOCERTINIB [Suspect]
     Active Substance: MOBOCERTINIB
     Indication: Bone cancer
     Dosage: 160 MILLIGRAM, QD
     Route: 048
     Dates: start: 20230322
  3. MOBOCERTINIB [Suspect]
     Active Substance: MOBOCERTINIB
     Dosage: 160 MILLIGRAM, QD
     Route: 048
     Dates: start: 20230623, end: 20230908
  4. MOBOCERTINIB [Suspect]
     Active Substance: MOBOCERTINIB
     Dosage: 120 MILLIGRAM
     Route: 048
     Dates: start: 20230914
  5. MOBOCERTINIB [Suspect]
     Active Substance: MOBOCERTINIB
     Dosage: 160 MILLIGRAM, QD
     Route: 048
     Dates: end: 20231204
  6. LISINOPRIL [Concomitant]
     Active Substance: LISINOPRIL
     Dosage: 10 MILLIGRAM, QD
     Route: 065
  7. CARVEDILOL [Concomitant]
     Active Substance: CARVEDILOL
     Dosage: 6.5 MILLIGRAM, BID
     Route: 065
  8. ATORVASTATIN [Concomitant]
     Active Substance: ATORVASTATIN
     Dosage: UNK
     Route: 065
  9. CLOPIDOGREL [Concomitant]
     Active Substance: CLOPIDOGREL BISULFATE
     Dosage: UNK
     Route: 065
  10. VITAMIN B12 [Concomitant]
     Active Substance: CYANOCOBALAMIN
     Dosage: UNK
     Route: 065
  11. VITAMIN D3 [Concomitant]
     Active Substance: CHOLECALCIFEROL
     Dosage: UNK
     Route: 065
  12. ASPIRIN [Concomitant]
     Active Substance: ASPIRIN
     Dosage: UNK
     Route: 065
  13. FOLIC ACID [Concomitant]
     Active Substance: FOLIC ACID
     Dosage: UNK
     Route: 065

REACTIONS (25)
  - COVID-19 [Unknown]
  - Urinary tract infection [Unknown]
  - Diarrhoea [Not Recovered/Not Resolved]
  - Weight decreased [Unknown]
  - Renal disorder [Recovering/Resolving]
  - Blood pressure decreased [Unknown]
  - Hypophagia [Not Recovered/Not Resolved]
  - Dehydration [Unknown]
  - Anaemia [Not Recovered/Not Resolved]
  - Fatigue [Unknown]
  - Blood pressure increased [Unknown]
  - Sunburn [Recovered/Resolved]
  - Rash macular [Recovered/Resolved]
  - Alopecia [Unknown]
  - Pericardial effusion [Unknown]
  - Blood iron decreased [Not Recovered/Not Resolved]
  - Pyrexia [Unknown]
  - Electrocardiogram abnormal [Unknown]
  - Fluid retention [Unknown]
  - Erythema [Recovering/Resolving]
  - Poor quality sleep [Unknown]
  - Cough [Unknown]
  - Cardiac monitoring abnormal [Unknown]
  - Product packaging difficult to open [Unknown]
  - Product use issue [Unknown]

NARRATIVE: CASE EVENT DATE: 20230329
